FAERS Safety Report 11394901 (Version 1)
Quarter: 2015Q3

REPORT INFORMATION
  Report Type: Spontaneous
  Country: US (occurrence: US)
  Receive Date: 20150819
  Receipt Date: 20150819
  Transmission Date: 20151125
  Serious: No
  Sender: FDA-Public Use
  Company Number: US-TEVA-586353USA

PATIENT
  Sex: Female
  Weight: 62.65 kg

DRUGS (1)
  1. CLARAVIS [Suspect]
     Active Substance: ISOTRETINOIN
     Indication: ACNE CYSTIC

REACTIONS (4)
  - Breast pain [Unknown]
  - Chest pain [Unknown]
  - Breast induration [Unknown]
  - Erythema [Unknown]
